FAERS Safety Report 7011385-4 (Version None)
Quarter: 2010Q3

REPORT INFORMATION
  Report Type: 
  Country: None (occurrence: None)
  Receive Date: 20100922
  Receipt Date: 20100922
  Transmission Date: 20110219
  Serious: Yes (Other)
  Sender: FDA-Public Use
  Company Number: None

PATIENT
  Sex: Female
  Weight: 57.6068 kg

DRUGS (1)
  1. DEBROX DROPS (6.5% NON USP CARBARMIDE PEROSIDE) BY GLAXOSMITHKLINE [Suspect]
     Indication: EAR DISORDER
     Dosage: 5-10 DROPS I USED ONCE EAR ONLY AFTER OVER 1 MONTH
     Route: 001
     Dates: start: 20100630

REACTIONS (2)
  - ADVERSE DRUG REACTION [None]
  - VERTIGO [None]
